FAERS Safety Report 16406506 (Version 1)
Quarter: 2019Q2

REPORT INFORMATION
  Report Type: Spontaneous
  Country: FR (occurrence: FR)
  Receive Date: 20190607
  Receipt Date: 20190607
  Transmission Date: 20190711
  Serious: Yes (Hospitalization)
  Sender: FDA-Public Use
  Company Number: PHHY2019FR127948

PATIENT
  Age: 61 Year
  Sex: Male
  Weight: 72 kg

DRUGS (4)
  1. NICOBION [Interacting]
     Active Substance: NIACINAMIDE
     Dosage: 1000 MG, QD
     Route: 048
     Dates: start: 20181211
  2. DOXYCYCLINE SANDOZ [Suspect]
     Active Substance: DOXYCYCLINE
     Indication: PEMPHIGOID
     Dosage: 200 MG, QD
     Route: 048
     Dates: start: 20181109, end: 20181210
  3. DEPAKINE [Interacting]
     Active Substance: VALPROATE SODIUM
     Indication: EPILEPSY
     Dosage: 1500 MG, QD
     Route: 048
     Dates: start: 201008
  4. NICOBION [Interacting]
     Active Substance: NIACINAMIDE
     Indication: PEMPHIGOID
     Dosage: 1000 MG, QD
     Route: 048
     Dates: start: 20181109

REACTIONS (3)
  - Psychomotor skills impaired [Recovered/Resolved]
  - Malaise [Recovered/Resolved]
  - Drug interaction [Recovering/Resolving]

NARRATIVE: CASE EVENT DATE: 20181112
